FAERS Safety Report 12168692 (Version 2)
Quarter: 2016Q2

REPORT INFORMATION
  Report Type: Spontaneous
  Country: US (occurrence: US)
  Receive Date: 20160310
  Receipt Date: 20160404
  Transmission Date: 20160815
  Serious: Yes (Hospitalization)
  Sender: FDA-Public Use
  Company Number: US-VERTEX PHARMACEUTICALS-2016-001424

PATIENT
  Age: 18 Year
  Sex: Male

DRUGS (10)
  1. PREVACID [Concomitant]
     Active Substance: LANSOPRAZOLE
  2. LEVEMIR [Concomitant]
     Active Substance: INSULIN DETEMIR
  3. AZITHROMYCIN ANHYDROUS. [Concomitant]
     Active Substance: AZITHROMYCIN ANHYDROUS
  4. URSODIOL. [Concomitant]
     Active Substance: URSODIOL
  5. PULMOZYME [Concomitant]
     Active Substance: DORNASE ALFA
  6. NOVOLOG [Concomitant]
     Active Substance: INSULIN ASPART
  7. ORKAMBI [Suspect]
     Active Substance: IVACAFTOR\LUMACAFTOR
     Indication: CYSTIC FIBROSIS
     Dosage: 2 DF, BID
     Route: 048
     Dates: start: 20150731
  8. DULERA [Concomitant]
     Active Substance: FORMOTEROL FUMARATE DIHYDRATE\MOMETASONE FUROATE
  9. ALBUTEROL. [Concomitant]
     Active Substance: ALBUTEROL
  10. ZENPEP [Concomitant]
     Active Substance: PANCRELIPASE AMYLASE\PANCRELIPASE LIPASE\PANCRELIPASE PROTEASE

REACTIONS (1)
  - Infective pulmonary exacerbation of cystic fibrosis [Recovered/Resolved]

NARRATIVE: CASE EVENT DATE: 20160223
